FAERS Safety Report 6186484-X (Version None)
Quarter: 2009Q2

REPORT INFORMATION
  Report Type: 
  Country: None (occurrence: None)
  Receive Date: 20090512
  Receipt Date: 20090506
  Transmission Date: 20091009
  Serious: Yes (Hospitalization)
  Sender: FDA-Public Use
  Company Number: CH-TEVA-194274ISR

PATIENT
  Age: 83 Year
  Sex: Male

DRUGS (10)
  1. AMLODIPINE [Suspect]
     Indication: ESSENTIAL HYPERTENSION
     Route: 048
     Dates: start: 20090123, end: 20090203
  2. VALSARTAN [Suspect]
     Indication: ESSENTIAL HYPERTENSION
     Route: 048
     Dates: start: 20090203, end: 20090320
  3. CELECOXIB [Concomitant]
  4. DIMETICONE, ACTIVATED [Concomitant]
  5. TORSEMIDE [Concomitant]
  6. PANTOPRAZOLE SODIUM [Concomitant]
  7. SOLIFENACIN [Concomitant]
  8. DONEPEZIL HCL [Concomitant]
  9. CHONDROITIN SULFATE [Concomitant]
  10. PARACETAMOL [Concomitant]

REACTIONS (1)
  - LEUKOCYTOCLASTIC VASCULITIS [None]
